FAERS Safety Report 10150149 (Version 1)
Quarter: 2014Q2

REPORT INFORMATION
  Report Type: Spontaneous
  Country: US (occurrence: US)
  Receive Date: 20140502
  Receipt Date: 20140502
  Transmission Date: 20141212
  Serious: Yes (Other)
  Sender: FDA-Public Use
  Company Number: US-GLAXOSMITHKLINE-A1071776A

PATIENT
  Age: 67 Year
  Sex: Male
  Weight: 113.6 kg

DRUGS (6)
  1. JALYN [Suspect]
     Indication: BENIGN PROSTATIC HYPERPLASIA
     Route: 065
     Dates: start: 2013, end: 201310
  2. ANDROGEL [Suspect]
     Indication: BLOOD TESTOSTERONE DECREASED
     Dosage: 40.5MG PER DAY
     Route: 061
     Dates: start: 2011
  3. REGULAR INSULIN [Concomitant]
  4. VERAPAMIL [Concomitant]
  5. BLOOD PRESSURE MEDICATION [Concomitant]
  6. AVODART [Concomitant]

REACTIONS (6)
  - Atrial fibrillation [Recovered/Resolved]
  - Prostatomegaly [Not Recovered/Not Resolved]
  - Urinary straining [Recovered/Resolved]
  - Breast pain [Recovered/Resolved]
  - Incorrect dose administered [Unknown]
  - Blood testosterone decreased [Unknown]
